FAERS Safety Report 17948459 (Version 1)
Quarter: 2020Q2

REPORT INFORMATION
  Report Type: Spontaneous
  Country: FR (occurrence: FR)
  Receive Date: 20200626
  Receipt Date: 20200626
  Transmission Date: 20200714
  Serious: Yes (Other)
  Sender: FDA-Public Use
  Company Number: NVSC2020FR178493

PATIENT
  Age: 29 Year
  Sex: Male

DRUGS (2)
  1. SPIRAMYCIN [Suspect]
     Active Substance: SPIRAMYCIN
     Indication: PNEUMONIA LEGIONELLA
     Dosage: 3 MIU, TID
     Route: 065
  2. LEVOFLOXACIN. [Suspect]
     Active Substance: LEVOFLOXACIN
     Indication: PNEUMONIA LEGIONELLA
     Dosage: 500 MG, BID
     Route: 065

REACTIONS (3)
  - Lung abscess [Unknown]
  - Drug ineffective [Unknown]
  - Lung consolidation [Unknown]
